FAERS Safety Report 8494174-3 (Version None)
Quarter: 2012Q3

REPORT INFORMATION
  Report Type: 
  Country: None (occurrence: None)
  Receive Date: 20120709
  Receipt Date: 20120702
  Transmission Date: 20120928
  Serious: Yes (Hospitalization, Other)
  Sender: FDA-Public Use
  Company Number: PHHY2010JP27099

PATIENT
  Sex: Female

DRUGS (11)
  1. CYCLOPHOSPHAMIDE [Concomitant]
     Indication: POSTOPERATIVE CARE
     Route: 042
     Dates: start: 20051001
  2. AROMASIN [Concomitant]
     Indication: BREAST CANCER RECURRENT
     Dates: start: 20040301, end: 20051101
  3. FEMARA [Concomitant]
     Indication: POSTOPERATIVE CARE
     Dosage: 2.5 MG, UNK
     Route: 048
     Dates: start: 20060808, end: 20070608
  4. NOLVADEX [Concomitant]
     Indication: METASTASES TO LYMPH NODES
     Dosage: 20 MG, UNK
     Route: 048
     Dates: start: 20080812, end: 20081006
  5. PROTON PUMP INHIBITORS [Concomitant]
  6. ZOMETA [Suspect]
     Indication: METASTASES TO BONE
     Dosage: 4 MG, ONCE A MONTH
     Route: 041
     Dates: start: 20070609, end: 20100426
  7. EPIRUBICIN HYDROCHLORIDE [Concomitant]
     Indication: POSTOPERATIVE CARE
     Route: 042
     Dates: start: 20051001
  8. TAXOTERE [Concomitant]
     Indication: POSTOPERATIVE CARE
     Route: 042
     Dates: start: 20060101
  9. MEDROXYPROGESTERONE ACETATE [Concomitant]
     Indication: TUMOUR MARKER INCREASED
     Dosage: 600 MG, UNK
     Route: 048
     Dates: start: 20070609, end: 20080811
  10. XELODA [Concomitant]
     Indication: TUMOUR MARKER INCREASED
     Dosage: 2400 MG, UNK
     Route: 048
     Dates: start: 20081006
  11. CORTICOSTEROID NOS [Concomitant]

REACTIONS (11)
  - BONE FRAGMENTATION [None]
  - BONE DISORDER [None]
  - PAIN IN EXTREMITY [None]
  - INJURY [None]
  - BONE PAIN [None]
  - FATIGUE [None]
  - BONE CALLUS EXCESSIVE [None]
  - FEMUR FRACTURE [None]
  - TUMOUR MARKER INCREASED [None]
  - OSTEONECROSIS OF JAW [None]
  - METASTASES TO LYMPH NODES [None]
